FAERS Safety Report 19379605 (Version 1)
Quarter: 2021Q2

REPORT INFORMATION
  Report Type: Spontaneous
  Country: US (occurrence: US)
  Receive Date: 20210607
  Receipt Date: 20210607
  Transmission Date: 20210717
  Serious: No
  Sender: FDA-Public Use
  Company Number: US-SA-2021SA187747

PATIENT
  Sex: Female

DRUGS (5)
  1. AUBAGIO [Suspect]
     Active Substance: TERIFLUNOMIDE
     Indication: PRODUCT USED FOR UNKNOWN INDICATION
     Dosage: 14 MG, QD
     Route: 048
  2. ELIQUIS [Concomitant]
     Active Substance: APIXABAN
  3. BUTRANS [Concomitant]
     Active Substance: BUPRENORPHINE
  4. LISINOPRIL. [Concomitant]
     Active Substance: LISINOPRIL
  5. BUPRENORPHIN [Concomitant]
     Active Substance: BUPRENORPHINE

REACTIONS (1)
  - Product dose omission in error [Unknown]
